FAERS Safety Report 26056145 (Version 1)
Quarter: 2025Q4

REPORT INFORMATION
  Report Type: Report from Study
  Country: CA (occurrence: CA)
  Receive Date: 20251118
  Receipt Date: 20251118
  Transmission Date: 20260117
  Serious: Yes (Hospitalization)
  Sender: ALEXION PHARMACEUTICALS
  Company Number: CA-AstraZeneca-CH-00989675A

PATIENT
  Sex: Male

DRUGS (3)
  1. BENRALIZUMAB [Suspect]
     Active Substance: BENRALIZUMAB
     Indication: Asthma
     Dosage: 30 MILLIGRAM
  2. BENRALIZUMAB [Suspect]
     Active Substance: BENRALIZUMAB
  3. SPIRIVA RESPIMAT [Concomitant]
     Active Substance: TIOTROPIUM BROMIDE
     Dosage: UNK
     Route: 065

REACTIONS (4)
  - COVID-19 [Unknown]
  - Escherichia urinary tract infection [Unknown]
  - Ischaemia [Unknown]
  - Wound [Unknown]
